FAERS Safety Report 11058484 (Version 2)
Quarter: 2015Q2

REPORT INFORMATION
  Report Type: Spontaneous
  Country: JP (occurrence: None)
  Receive Date: 20150421
  Receipt Date: 20150520
  Transmission Date: 20150821
  Serious: Yes (Hospitalization, Other)
  Sender: FDA-Public Use
  Company Number: 2015-10957

PATIENT
  Age: 59 Year
  Sex: Male
  Weight: 103 kg

DRUGS (24)
  1. BAYASPIRIN (ACETYLSALICYLIC ACID) (ACETYLSALICYLIC ACID) [Concomitant]
     Active Substance: ASPIRIN
  2. RINDERON VG [Concomitant]
     Active Substance: BETAMETHASONE VALERATE\GENTAMICIN SULFATE
  3. PATANOL (OLOPATADINE HYDROCHLORIDE) [Concomitant]
  4. URSO (URSODEOXYCHOLIC ACID) [Concomitant]
  5. PLAVIX (CLOPIDOGREL BISULFATE) [Concomitant]
  6. EYLEA [Suspect]
     Active Substance: AFLIBERCEPT
     Indication: DIABETIC RETINAL OEDEMA
     Route: 031
     Dates: start: 20150106, end: 20150106
  7. BRONUCK (BROMFENAC SODIUM) [Concomitant]
  8. GASMOTIN (MOSAPRIDE CITRATE) [Concomitant]
     Active Substance: MOSAPRIDE CITRATE
  9. IRBESARTAN. [Concomitant]
     Active Substance: IRBESARTAN
  10. AMLODIN (AMLODIPINE BESILATE) [Concomitant]
  11. MOHRUS (KETOPROFEN) [Concomitant]
  12. VEGAMOX (MOXIFLOXACIN HYDROCHLORIDE) [Concomitant]
  13. SECTOR (KETOPROFEN) [Concomitant]
  14. FLUTIDE (FLUTICASONE PROPIONATE) [Concomitant]
  15. ZADITEN (KETOTIFEN FUMARATE) [Concomitant]
  16. MEDET (METFORMIN HYDROCHLORIDE) [Concomitant]
  17. HUMALOG [Concomitant]
     Active Substance: INSULIN LISPRO
  18. MYSLEE (ZOLPIDEM TARTRATE) [Concomitant]
  19. SANCOBA (CYANOCOBALAMIN) [Concomitant]
  20. PURSENNID (SENNOSIDE A+B) [Concomitant]
  21. DEPAS (ETIZOLAM) [Concomitant]
  22. EMPYNASE P (PRONASE) [Concomitant]
  23. FOIPAN (CAMOSTAT MESILATE) [Concomitant]
  24. SP (CAFFEINE, PARACETAMOL, PHENYLEPHRINE HYDROCHLORIDE) [Concomitant]

REACTIONS (3)
  - Transient ischaemic attack [None]
  - Dizziness [None]
  - Coordination abnormal [None]

NARRATIVE: CASE EVENT DATE: 20150315
